FAERS Safety Report 24653894 (Version 1)
Quarter: 2024Q4

REPORT INFORMATION
  Report Type: Spontaneous
  Country: US (occurrence: US)
  Receive Date: 20241122
  Receipt Date: 20241122
  Transmission Date: 20250115
  Serious: Yes (Other)
  Sender: BRISTOL-MYERS SQUIBB COMPANY
  Company Number: US-BRISTOL-MYERS SQUIBB COMPANY-2024-176813

PATIENT
  Age: 41 Year
  Sex: Female
  Weight: 54.43 kg

DRUGS (1)
  1. DASATINIB [Suspect]
     Active Substance: DASATINIB
     Indication: Chronic myeloid leukaemia
     Dosage: FREQUENCY: EVERY MORNING
     Route: 048
     Dates: start: 20231108

REACTIONS (3)
  - Acne cystic [Recovering/Resolving]
  - Erythema multiforme [Unknown]
  - Blood pressure increased [Unknown]
